FAERS Safety Report 14045038 (Version 3)
Quarter: 2018Q1

REPORT INFORMATION
  Report Type: Spontaneous
  Country: IT (occurrence: IT)
  Receive Date: 20171005
  Receipt Date: 20180118
  Transmission Date: 20180508
  Serious: Yes (Other)
  Sender: FDA-Public Use
  Company Number: IT-009507513-1710ITA001800

PATIENT
  Age: 77 Year
  Sex: Male

DRUGS (3)
  1. ZUGLIMET [Concomitant]
     Active Substance: METFORMIN HYDROCHLORIDE
     Indication: TYPE 2 DIABETES MELLITUS
     Dosage: 1500 MG/ORAL
     Route: 048
     Dates: start: 20150924
  2. TRIATEC (RAMIPRIL) [Concomitant]
     Active Substance: RAMIPRIL
     Indication: HYPERTENSION
     Dosage: 10 MG/ORAL
     Route: 048
     Dates: start: 20150924
  3. JANUVIA [Suspect]
     Active Substance: SITAGLIPTIN PHOSPHATE
     Indication: TYPE 2 DIABETES MELLITUS
     Dosage: 100 MG/DAILY/ORAL
     Route: 048
     Dates: start: 20150729, end: 20170520

REACTIONS (1)
  - Eczema nummular [Recovered/Resolved]

NARRATIVE: CASE EVENT DATE: 20170428
